FAERS Safety Report 5124731-3 (Version None)
Quarter: 2006Q4

REPORT INFORMATION
  Report Type: 
  Country: None (occurrence: None)
  Receive Date: 20061011
  Receipt Date: 20061006
  Transmission Date: 20070319
  Serious: Yes (Hospitalization)
  Sender: FDA-Public Use
  Company Number: 2006-00892FE

PATIENT
  Age: 84 Year
  Sex: Female

DRUGS (1)
  1. MINIRIN [Suspect]
     Indication: NOCTURIA
     Route: 048
     Dates: start: 20060831, end: 20060904

REACTIONS (3)
  - CONCUSSION [None]
  - FALL [None]
  - HYPONATRAEMIA [None]
